FAERS Safety Report 16555814 (Version 1)
Quarter: 2019Q3

REPORT INFORMATION
  Report Type: Spontaneous
  Country: US (occurrence: US)
  Receive Date: 20190710
  Receipt Date: 20190710
  Transmission Date: 20191004
  Serious: Yes (Hospitalization)
  Sender: FDA-Public Use
  Company Number: PHHY2019US154570

PATIENT
  Age: 52 Year
  Sex: Female

DRUGS (12)
  1. ROPINIROLE. [Suspect]
     Active Substance: ROPINIROLE
     Indication: PARKINSONISM
     Dosage: 8 MG, QD
     Route: 065
  2. CLONAZEPAM. [Suspect]
     Active Substance: CLONAZEPAM
     Indication: PARKINSONISM
     Dosage: 1 MG, (BED TIME)
     Route: 065
  3. ROPINIROLE. [Suspect]
     Active Substance: ROPINIROLE
     Dosage: 8 MG, QD
     Route: 065
  4. ROPINIROLE. [Suspect]
     Active Substance: ROPINIROLE
     Dosage: 16 MG, QD
     Route: 065
  5. CARBIDOPA/LEVODOPA [Suspect]
     Active Substance: CARBIDOPA\LEVODOPA
     Dosage: 4 DF, QD
     Route: 065
  6. ROTIGOTINE [Suspect]
     Active Substance: ROTIGOTINE
     Indication: PARKINSONISM
     Dosage: 4 MG, UNK
     Route: 065
  7. CARBIDOPA/LEVODOPA [Suspect]
     Active Substance: CARBIDOPA\LEVODOPA
     Indication: PARKINSONISM
     Dosage: 3 DF (25/100), QD
     Route: 065
  8. LEVODOPA [Suspect]
     Active Substance: LEVODOPA
     Indication: PARKINSONISM
     Dosage: 800 MG, QD
     Route: 065
  9. CARBIDOPA/LEVODOPA [Suspect]
     Active Substance: CARBIDOPA\LEVODOPA
     Dosage: 7-10 TABLETS, QD
     Route: 065
  10. LEVODOPA [Suspect]
     Active Substance: LEVODOPA
     Dosage: 500 MG, QD
     Route: 065
  11. CARBIDOPA/LEVODOPA [Suspect]
     Active Substance: CARBIDOPA\LEVODOPA
     Dosage: 2 DF, QD
     Route: 065
  12. ROTIGOTINE [Suspect]
     Active Substance: ROTIGOTINE
     Dosage: 8 MG, UNK
     Route: 065

REACTIONS (15)
  - Hallucination, auditory [Unknown]
  - Dyspnoea [Unknown]
  - Pain in extremity [Unknown]
  - Hyperhidrosis [Unknown]
  - Psychotic disorder [Recovering/Resolving]
  - Delusion [Unknown]
  - Panic reaction [Unknown]
  - Depression [Unknown]
  - Feeling jittery [Unknown]
  - Dopamine dysregulation syndrome [Unknown]
  - Mobility decreased [Unknown]
  - Urinary tract infection [Unknown]
  - Anxiety [Unknown]
  - Dyskinesia [Unknown]
  - Restlessness [Unknown]
